FAERS Safety Report 13477976 (Version 1)
Quarter: 2017Q2

REPORT INFORMATION
  Report Type: Spontaneous
  Country: US (occurrence: US)
  Receive Date: 20170425
  Receipt Date: 20170425
  Transmission Date: 20170830
  Serious: No
  Sender: FDA-Public Use
  Company Number: US-009507513-1704USA006464

PATIENT

DRUGS (2)
  1. ZOSTAVAX [Suspect]
     Active Substance: VARICELLA-ZOSTER VIRUS STRAIN OKA/MERCK LIVE ANTIGEN
     Indication: PROPHYLAXIS
     Route: 058
     Dates: start: 20170206, end: 20170206
  2. STERILE DILUENT [Suspect]
     Active Substance: WATER
     Dosage: UNK, ONCE
     Route: 058
     Dates: start: 20170206, end: 20170206

REACTIONS (4)
  - Underdose [Unknown]
  - Incorrect dose administered [Unknown]
  - Needle issue [Unknown]
  - No adverse event [Unknown]

NARRATIVE: CASE EVENT DATE: 20170206
